FAERS Safety Report 4919136-1 (Version None)
Quarter: 2006Q1

REPORT INFORMATION
  Report Type: 
  Country: None (occurrence: None)
  Receive Date: 20060222
  Receipt Date: 20051121
  Transmission Date: 20060701
  Serious: Yes (Other)
  Sender: FDA-Public Use
  Company Number: GB-BRISTOL-MYERS SQUIBB COMPANY-13288303

PATIENT
  Sex: Female

DRUGS (1)
  1. TRAZODONE HCL [Suspect]

REACTIONS (1)
  - HYPONATRAEMIA [None]
